FAERS Safety Report 5958092-4 (Version None)
Quarter: 2008Q4

REPORT INFORMATION
  Report Type: 
  Country: None (occurrence: None)
  Receive Date: 20081119
  Receipt Date: 20081113
  Transmission Date: 20090506
  Serious: Yes (Other)
  Sender: FDA-Public Use
  Company Number: B0546141A

PATIENT
  Sex: Female

DRUGS (6)
  1. MALARONE [Suspect]
     Dosage: 750MG TWICE PER DAY
     Route: 048
     Dates: start: 20081101
  2. SEPTRIN [Suspect]
     Dosage: 480MG PER DAY
     Route: 048
  3. TACROLIMUS [Concomitant]
     Route: 048
  4. MYCOPHENOLATE MOFETIL [Concomitant]
     Route: 048
  5. SIMVASTATIN [Concomitant]
     Dosage: 40MG PER DAY
     Route: 048
  6. VIT B CO STRONG [Concomitant]
     Dosage: 2TAB TWICE PER DAY
     Route: 048

REACTIONS (3)
  - HYPOGLYCAEMIA [None]
  - ILL-DEFINED DISORDER [None]
  - NAUSEA [None]
